FAERS Safety Report 10548027 (Version 3)
Quarter: 2014Q4

REPORT INFORMATION
  Report Type: Report from Study
  Country: US (occurrence: US)
  Receive Date: 20141028
  Receipt Date: 20141127
  Transmission Date: 20150529
  Serious: No
  Sender: FDA-Public Use
  Company Number: US-AMGEN-USASL2014081888

PATIENT
  Age: 53 Year
  Sex: Female
  Weight: 66.03 kg

DRUGS (14)
  1. BIOTIN [Concomitant]
     Active Substance: BIOTIN
     Dosage: 5000 MCG DAILY
     Dates: start: 20140513
  2. ENBREL [Suspect]
     Active Substance: ETANERCEPT
     Indication: RHEUMATOID ARTHRITIS
     Dosage: 50 MG, QWK
     Route: 065
     Dates: start: 20111015
  3. FLUOCINOLONE [Concomitant]
     Active Substance: FLUOCINOLONE
     Dosage: 1 MG EVERY DAY FOR 30 DAYS
     Route: 061
     Dates: start: 20140408
  4. MAG OXIDE [Concomitant]
     Dosage: 400 MG, (1 TABLET EVERY DAY)
     Route: 048
     Dates: start: 20140513
  5. RANITIDINE [Concomitant]
     Active Substance: RANITIDINE\RANITIDINE HYDROCHLORIDE
     Dosage: 150 MG, (1 TABLET TWICE A DAY)
     Route: 048
     Dates: start: 20140604
  6. ERGOCALCIFEROL. [Concomitant]
     Active Substance: ERGOCALCIFEROL
     Dosage: 50000 UNIT (1 CAPSULE EVERY MONTH)
     Route: 048
     Dates: start: 20140610
  7. VITAMIN B12 [Concomitant]
     Active Substance: CYANOCOBALAMIN
     Dosage: 1000 MU, EVERYDAY
     Route: 048
     Dates: start: 20140409
  8. VYTORIN [Concomitant]
     Active Substance: EZETIMIBE\SIMVASTATIN
     Dosage: 10 MG -40 MG, ONCE DAILY
     Dates: start: 20140714
  9. ACTEMRA [Concomitant]
     Active Substance: TOCILIZUMAB
     Dosage: 534.5 MG EVERY FOUR WEEKS
  10. GABAPENTIN. [Concomitant]
     Active Substance: GABAPENTIN
     Dosage: 100 MG, UNK (2-3 CAPSULES DAILY, CURRENTLY 1 CAPSULE 3 TIMES DAILY)
     Dates: start: 20140627
  11. BACLOFEN. [Concomitant]
     Active Substance: BACLOFEN
     Dosage: 10 MG, 2 TABLETS AT BEDTIME
  12. HYOSCYAMINE [Concomitant]
     Active Substance: HYOSCYAMINE
     Dosage: 0.125 MG, UNK (1 TABLET 4 TIMES A DAY, 90 DAYS)
     Route: 060
     Dates: start: 20140627
  13. METOPROLOL SUCCINATE. [Concomitant]
     Active Substance: METOPROLOL SUCCINATE
     Dosage: 50 MG, (EXTENDED RELEASE 24 HOUR TAKE 1.5 TABLET DAILY, 75 MG)
     Dates: start: 20140727
  14. BENICAR HCT [Concomitant]
     Active Substance: HYDROCHLOROTHIAZIDE\OLMESARTAN MEDOXOMIL
     Dosage: 40 MG-12.5 MG TABLET, UNK
     Dates: start: 20140727

REACTIONS (8)
  - Injection site swelling [Recovering/Resolving]
  - Injection site pruritus [Not Recovered/Not Resolved]
  - Injection site urticaria [Recovering/Resolving]
  - Injection site induration [Not Recovered/Not Resolved]
  - Injection site reaction [Recovered/Resolved]
  - Injection site erythema [Recovering/Resolving]
  - Injection site warmth [Not Recovered/Not Resolved]
  - Injection site pain [Recovering/Resolving]

NARRATIVE: CASE EVENT DATE: 201408
